FAERS Safety Report 7410398-8 (Version None)
Quarter: 2011Q2

REPORT INFORMATION
  Report Type: 
  Country: None (occurrence: None)
  Receive Date: 20110412
  Receipt Date: 20110407
  Transmission Date: 20111010
  Serious: Yes (Death)
  Sender: FDA-Public Use
  Company Number: FR-MERCK-1104FRA00056

PATIENT
  Age: 64 Year
  Sex: Male
  Weight: 79 kg

DRUGS (3)
  1. JANUMET [Suspect]
     Indication: TYPE 2 DIABETES MELLITUS
     Route: 048
     Dates: start: 20100408, end: 20110327
  2. VASOTEC [Concomitant]
     Indication: HYPERTENSION
     Route: 048
     Dates: start: 19790219, end: 20110327
  3. ZOCOR [Concomitant]
     Indication: DYSLIPIDAEMIA
     Route: 048
     Dates: end: 20110327

REACTIONS (1)
  - CARDIAC ARREST [None]
